FAERS Safety Report 20751694 (Version 2)
Quarter: 2022Q2

REPORT INFORMATION
  Report Type: Spontaneous
  Country: RU (occurrence: RU)
  Receive Date: 20220426
  Receipt Date: 20220506
  Transmission Date: 20220721
  Serious: Yes (Other)
  Sender: FDA-Public Use
  Company Number: RU-NOVARTISPH-NVSC2022RU092409

PATIENT
  Sex: Female

DRUGS (2)
  1. BETOPTIC [Suspect]
     Active Substance: BETAXOLOL HYDROCHLORIDE
     Indication: Glaucoma
     Dosage: 4 DRP (2 DROPS IN THE MORNING AND 2 DROPS IN THE EVENING)
     Route: 065
     Dates: start: 2002
  2. BETOPTIC [Suspect]
     Active Substance: BETAXOLOL HYDROCHLORIDE
     Dosage: 1 DRP (DOSE CHANGED)
     Route: 065
     Dates: start: 2002

REACTIONS (6)
  - Blindness [Unknown]
  - Arrhythmia [Unknown]
  - Bronchospasm [Unknown]
  - Eye pain [Unknown]
  - Lacrimation increased [Unknown]
  - Tachycardia [Unknown]
